FAERS Safety Report 9119639 (Version 3)
Quarter: 2013Q2

REPORT INFORMATION
  Report Type: Report from Study
  Country: AU (occurrence: AU)
  Receive Date: 20130226
  Receipt Date: 20130415
  Transmission Date: 20140414
  Serious: Yes (Life-Threatening, Hospitalization, Other)
  Sender: FDA-Public Use
  Company Number: AU-ASTRAZENECA-2013SE12519

PATIENT
  Age: 10791 Day
  Sex: Female

DRUGS (9)
  1. SEROQUEL XR [Suspect]
     Indication: PSYCHOTIC DISORDER
     Dosage: 50 MG/DAY AT 34/40 WKS P/N 10WKS
     Route: 048
  2. RISPERDAL CONSTA [Suspect]
     Indication: ANTIPSYCHOTIC DRUG LEVEL THERAPEUTIC
     Dosage: 37.5 MG, 2/52 FORTNIGHTLY INITIATED PRE-PREGNANCY AND ONGOING
     Route: 030
  3. ESCITALOPRAM [Suspect]
     Indication: ANTIDEPRESSANT THERAPY
     Dosage: 40 MG/DAY PRE-PREGNANCY AND ONGOING
     Route: 048
  4. OXYCONTIN [Suspect]
     Indication: PELVIC PAIN
     Dosage: 20-30 MG/DAY INITIATED AT 27/40 WEEKS AND STOPPED AT BIRTH
     Route: 048
  5. OXYNORM [Suspect]
     Indication: PELVIC PAIN
     Dosage: 5-10 MG/DAY INITIATED AT 27/40 WEEKS AND STOPPED AT BIRTH
     Route: 048
  6. ELEVIT [Concomitant]
     Indication: SUPPLEMENTATION THERAPY
     Dosage: 1 TABLET/DAY FROM FIRST TRIMESTER AND STOPPED AT BIRTH
     Route: 048
  7. VIT D [Concomitant]
     Indication: VITAMIN SUPPLEMENTATION
     Dosage: 1 TABLET/DAY FROM FIRST TRIMESTER AND ONGOING
     Route: 048
  8. NOVORAPID [Concomitant]
     Indication: GESTATIONAL DIABETES
     Dosage: FROM 32/40 WEEKS UNTIL BIRTH, THREE TMES A DAY
     Route: 058
  9. PROTOPHANE [Concomitant]
     Indication: GESTATIONAL DIABETES
     Dosage: FROM 32/40 WEEKS UNTIL BIRTH, AT NIGHT
     Route: 058

REACTIONS (3)
  - Exposure during pregnancy [Recovered/Resolved]
  - Gestational diabetes [Recovered/Resolved]
  - Respiratory distress [Recovered/Resolved]
